FAERS Safety Report 6739907-9 (Version None)
Quarter: 2010Q2

REPORT INFORMATION
  Report Type: 
  Country: None (occurrence: None)
  Receive Date: 20100525
  Receipt Date: 20100513
  Transmission Date: 20101027
  Serious: Yes (Hospitalization)
  Sender: FDA-Public Use
  Company Number: JP-PFIZER INC-2010063997

PATIENT
  Age: 66 Year
  Sex: Male

DRUGS (9)
  1. LIPITOR [Suspect]
     Indication: DYSLIPIDAEMIA
     Dosage: 10 MG, 1X/DAY
     Route: 048
     Dates: start: 20090101, end: 20100507
  2. MICARDIS [Suspect]
     Dosage: 40 MG, 1X/DAY
     Route: 048
     Dates: start: 20090101, end: 20100426
  3. BUFFERIN [Concomitant]
     Dosage: UNK
     Dates: start: 20090101, end: 20100507
  4. TAKEPRON [Concomitant]
     Dosage: UNK
     Dates: start: 20090101, end: 20100507
  5. CANDESARTAN CILEXETIL [Concomitant]
     Dosage: UNK
     Dates: start: 20090101, end: 20100507
  6. EPADEL [Concomitant]
     Dosage: UNK
     Route: 048
     Dates: start: 20090101, end: 20100507
  7. ISOSORBIDE DINITRATE [Concomitant]
     Dosage: UNK
     Dates: start: 20090101, end: 20100507
  8. ARTIST [Concomitant]
     Dosage: UNK
     Route: 048
     Dates: start: 20090101, end: 20100507
  9. LASIX [Concomitant]
     Dosage: UNK
     Route: 048
     Dates: start: 20000101, end: 20100507

REACTIONS (2)
  - HEPATIC FUNCTION ABNORMAL [None]
  - PNEUMONIA [None]
